FAERS Safety Report 7487300-6 (Version None)
Quarter: 2011Q2

REPORT INFORMATION
  Report Type: 
  Country: None (occurrence: None)
  Receive Date: 20110510
  Receipt Date: 20110503
  Transmission Date: 20111010
  Serious: Yes (Hospitalization)
  Sender: FDA-Public Use
  Company Number: 2011SP020010

PATIENT
  Sex: Male

DRUGS (2)
  1. ANTIDEPRESSANT [Concomitant]
  2. INTRON A [Suspect]
     Indication: PRODUCT USED FOR UNKNOWN INDICATION
     Dosage: 38 MIU; TIE; IV; 30 MIU; IV; 30 MIU;TIM;IV
     Route: 042
     Dates: start: 20100308

REACTIONS (7)
  - CHILLS [None]
  - BACK PAIN [None]
  - PYREXIA [None]
  - PERICARDITIS [None]
  - NAUSEA [None]
  - CHEST DISCOMFORT [None]
  - FATIGUE [None]
